FAERS Safety Report 16180548 (Version 1)
Quarter: 2019Q2

REPORT INFORMATION
  Report Type: Spontaneous
  Country: CN (occurrence: CN)
  Receive Date: 20190410
  Receipt Date: 20190410
  Transmission Date: 20190711
  Serious: Yes (Other)
  Sender: FDA-Public Use
  Company Number: CN-ASTRAZENECA-2019SE53947

PATIENT
  Sex: Male

DRUGS (2)
  1. LOSEC [Suspect]
     Active Substance: OMEPRAZOLE
     Route: 048
  2. AXITINIB [Concomitant]
     Active Substance: AXITINIB
     Indication: RENAL CANCER

REACTIONS (4)
  - Eating disorder [Recovered/Resolved]
  - Renal cancer [Unknown]
  - Decreased appetite [Unknown]
  - Diarrhoea [Recovered/Resolved]
